FAERS Safety Report 7296758-7 (Version None)
Quarter: 2011Q1

REPORT INFORMATION
  Report Type: 
  Country: None (occurrence: None)
  Receive Date: 20110216
  Receipt Date: 20110210
  Transmission Date: 20110831
  Serious: Yes (Other)
  Sender: FDA-Public Use
  Company Number: A0912907A

PATIENT
  Sex: Male

DRUGS (2)
  1. VENTOLIN [Suspect]
     Indication: ASTHMA
     Dosage: 1PUFF FOUR TIMES PER DAY
     Route: 055
  2. QVAR 40 [Concomitant]

REACTIONS (5)
  - PRODUCT QUALITY ISSUE [None]
  - COUGH [None]
  - DRUG INEFFECTIVE [None]
  - ASTHMA [None]
  - ILL-DEFINED DISORDER [None]
